FAERS Safety Report 17689504 (Version 1)
Quarter: 2020Q2

REPORT INFORMATION
  Report Type: Spontaneous
  Country: US (occurrence: US)
  Receive Date: 20200421
  Receipt Date: 20200421
  Transmission Date: 20200714
  Serious: No
  Sender: FDA-Public Use
  Company Number: None

PATIENT
  Age: 70 Year
  Sex: Male
  Weight: 114.75 kg

DRUGS (2)
  1. DAPTOMYCIN 500MG/100ML NS HOMEPUMP [Suspect]
     Active Substance: DAPTOMYCIN
     Indication: OSTEOARTHRITIS
     Route: 041
     Dates: start: 20200226, end: 20200311
  2. CEFTRIAXONE. [Concomitant]
     Active Substance: CEFTRIAXONE

REACTIONS (2)
  - Blood creatine phosphokinase increased [None]
  - Therapy change [None]

NARRATIVE: CASE EVENT DATE: 20200303
